FAERS Safety Report 6242848-7 (Version None)
Quarter: 2009Q2

REPORT INFORMATION
  Report Type: 
  Country: None (occurrence: None)
  Receive Date: 20090624
  Receipt Date: 20090618
  Transmission Date: 20091009
  Serious: Yes (Hospitalization, Other)
  Sender: FDA-Public Use
  Company Number: A0793375A

PATIENT
  Sex: Male
  Weight: 80 kg

DRUGS (1)
  1. ANTAK [Suspect]
     Indication: POSTOPERATIVE CARE
     Dates: start: 20090617, end: 20090617

REACTIONS (1)
  - CARDIAC ARREST [None]
